FAERS Safety Report 7465285 (Version 3)
Quarter: 2014Q1

REPORT INFORMATION
  Report Type: Spontaneous
  Country: US (occurrence: US)
  Receive Date: 20100712
  Receipt Date: 20140116
  Transmission Date: 20141002
  Serious: Yes (Hospitalization, Other)
  Sender: FDA-Public Use
  Company Number: US-BAYER-201026673NA

PATIENT
  Age: 30 Year
  Sex: Female
  Weight: 108.84 kg

DRUGS (11)
  1. YASMIN [Suspect]
     Indication: CONTRACEPTION
     Route: 048
     Dates: start: 20040812, end: 20060602
  2. YASMIN [Suspect]
     Indication: ACNE
  3. YASMIN [Suspect]
     Indication: PREMENSTRUAL SYNDROME
  4. YAZ [Suspect]
     Indication: CONTRACEPTION
     Dosage: UNK
     Dates: start: 20040812, end: 20060602
  5. YAZ [Suspect]
     Indication: ACNE
  6. YAZ [Suspect]
     Indication: PREMENSTRUAL SYNDROME
  7. TRAMADOL [Concomitant]
     Dosage: UNK
     Dates: start: 20070425
  8. EFFEXOR [Concomitant]
  9. IBUPROFEN [Concomitant]
     Dosage: 600 MG, UNK
  10. CEFADROXIL [Concomitant]
     Dosage: 500 MG, UNK
  11. METHERGINE [Concomitant]
     Dosage: 0.2 MG, UNK

REACTIONS (2)
  - Gallbladder disorder [Unknown]
  - Cholecystitis chronic [None]
